FAERS Safety Report 5452632-X (Version None)
Quarter: 2007Q3

REPORT INFORMATION
  Report Type: 
  Country: None (occurrence: None)
  Receive Date: 20070914
  Receipt Date: 20070907
  Transmission Date: 20080115
  Serious: Yes (Hospitalization)
  Sender: FDA-Public Use
  Company Number: FR-AVENTIS-200712788FR

PATIENT
  Age: 83 Year
  Sex: Male

DRUGS (4)
  1. LOVENOX [Suspect]
     Indication: ERYSIPELAS
     Route: 058
     Dates: start: 20070728, end: 20070802
  2. PYOSTACINE [Suspect]
     Indication: ERYSIPELAS
     Route: 048
     Dates: start: 20070730, end: 20070801
  3. AMOXICILLIN [Suspect]
     Indication: ERYSIPELAS
     Dates: start: 20070728, end: 20070728
  4. PRAVASTATINE                       /00880401/ [Suspect]
     Route: 048
     Dates: start: 20070724, end: 20070802

REACTIONS (2)
  - ACUTE GENERALISED EXANTHEMATOUS PUSTULOSIS [None]
  - DIARRHOEA [None]
